FAERS Safety Report 22595149 (Version 1)
Quarter: 2023Q2

REPORT INFORMATION
  Report Type: Spontaneous
  Country: US (occurrence: None)
  Receive Date: 20230612
  Receipt Date: 20230612
  Transmission Date: 20230721
  Serious: Yes (Other)
  Sender: FDA-Public Use
  Company Number: None

PATIENT
  Age: 71 Year
  Sex: Female
  Weight: 99.81 kg

DRUGS (17)
  1. POMALYST [Suspect]
     Active Substance: POMALIDOMIDE
     Indication: Plasma cell myeloma
     Dosage: OTHER FREQUENCY : 21 DAYS ON/7 OFF;?
     Route: 048
     Dates: start: 20220420
  2. ATORVASTATIN [Concomitant]
     Active Substance: ATORVASTATIN
  3. CELEBREX [Concomitant]
     Active Substance: CELECOXIB
  4. DEXAMETHASONE [Concomitant]
     Active Substance: DEXAMETHASONE
  5. ELIQUIS [Concomitant]
     Active Substance: APIXABAN
  6. FERROUS SULFATE [Concomitant]
     Active Substance: FERROUS SULFATE
  7. GLYBURIDE [Concomitant]
     Active Substance: GLYBURIDE
  8. LASIX [Concomitant]
     Active Substance: FUROSEMIDE
  9. LEVAQUIN [Concomitant]
     Active Substance: LEVOFLOXACIN
  10. METFORMIN [Concomitant]
     Active Substance: METFORMIN HYDROCHLORIDE
  11. ONDANSETRON [Concomitant]
     Active Substance: ONDANSETRON
  12. OXYCODONE [Concomitant]
     Active Substance: OXYCODONE
  13. POTASSIUM CHLORIDE [Concomitant]
     Active Substance: POTASSIUM CHLORIDE
  14. REMERON [Concomitant]
     Active Substance: MIRTAZAPINE
  15. RYBELSUS [Concomitant]
     Active Substance: SEMAGLUTIDE
  16. SEMAGLUTIDE [Concomitant]
     Active Substance: SEMAGLUTIDE
  17. ZOLPIDEM [Concomitant]
     Active Substance: ZOLPIDEM TARTRATE

REACTIONS (1)
  - Neutropenia [None]

NARRATIVE: CASE EVENT DATE: 20230608
